FAERS Safety Report 8177980-4 (Version None)
Quarter: 2012Q1

REPORT INFORMATION
  Report Type: 
  Country: None (occurrence: None)
  Receive Date: 20120130
  Receipt Date: 20110519
  Transmission Date: 20120608
  Serious: Yes (Other)
  Sender: FDA-Public Use
  Company Number: 033243

PATIENT
  Sex: Male
  Weight: 70.3 kg

DRUGS (6)
  1. M.V.I. [Concomitant]
  2. CLARITIN [Concomitant]
  3. KEPPRA [Suspect]
     Indication: CONVULSION
     Dosage: (500 MG BID ORAL), (INCREASED DOSE ORAL), (TAPERED DOSE, TO FINISH TREATMENT ON 30-MAY-2011 ORAL)
     Route: 048
     Dates: start: 20110101
  4. KEPPRA [Suspect]
     Indication: CONVULSION
     Dosage: (500 MG BID ORAL), (INCREASED DOSE ORAL), (TAPERED DOSE, TO FINISH TREATMENT ON 30-MAY-2011 ORAL)
     Route: 048
     Dates: start: 20110406, end: 20110101
  5. KEPPRA [Suspect]
     Indication: CONVULSION
     Dosage: (500 MG BID ORAL), (INCREASED DOSE ORAL), (TAPERED DOSE, TO FINISH TREATMENT ON 30-MAY-2011 ORAL)
     Route: 048
     Dates: start: 20110101
  6. TEGRETOL [Concomitant]

REACTIONS (3)
  - DRUG INEFFECTIVE [None]
  - AGGRESSION [None]
  - CONVULSION [None]
